FAERS Safety Report 6626371-3 (Version None)
Quarter: 2010Q1

REPORT INFORMATION
  Report Type: 
  Country: None (occurrence: None)
  Receive Date: 20100310
  Receipt Date: 20091022
  Transmission Date: 20100710
  Serious: No
  Sender: FDA-Public Use
  Company Number: US-ABBOTT-09P-163-0604806-00

PATIENT
  Sex: Female
  Weight: 56.296 kg

DRUGS (2)
  1. LUPRON DEPOT [Suspect]
     Indication: UTERINE LEIOMYOMA
     Route: 030
     Dates: start: 20090613, end: 20090613
  2. DEPO-PROVERA [Concomitant]
     Indication: UTERINE LEIOMYOMA
     Route: 030
     Dates: start: 20090613, end: 20090613

REACTIONS (7)
  - AMNESIA [None]
  - BLOOD PRESSURE INCREASED [None]
  - BONE PAIN [None]
  - FATIGUE [None]
  - HEADACHE [None]
  - HOT FLUSH [None]
  - OEDEMA PERIPHERAL [None]
